FAERS Safety Report 10125273 (Version 1)
Quarter: 2014Q2

REPORT INFORMATION
  Report Type: Spontaneous
  Country: TR (occurrence: TR)
  Receive Date: 20140425
  Receipt Date: 20140425
  Transmission Date: 20141212
  Serious: Yes (Other)
  Sender: FDA-Public Use
  Company Number: TR-JNJFOC-20140414793

PATIENT
  Sex: 0

DRUGS (3)
  1. DOXORUBICIN [Suspect]
     Indication: NEOPLASM MALIGNANT
     Route: 042
  2. DAUNORUBICIN [Suspect]
     Indication: NEOPLASM MALIGNANT
     Route: 065
  3. RADIOTHERAPY [Concomitant]
     Dosage: MEAN RADIATION DOSE WAS 22  /- 7 (RANGE 15-36) GY
     Route: 065

REACTIONS (1)
  - Ventricular extrasystoles [Unknown]
